FAERS Safety Report 8360135-8 (Version None)
Quarter: 2012Q2

REPORT INFORMATION
  Report Type: 
  Country: None (occurrence: None)
  Receive Date: 20120515
  Receipt Date: 20110616
  Transmission Date: 20120825
  Serious: No
  Sender: FDA-Public Use
  Company Number: US-ALEXION-A201100883

PATIENT
  Sex: Female

DRUGS (1)
  1. SOLIRIS [Suspect]
     Indication: PAROXYSMAL NOCTURNAL HAEMOGLOBINURIA
     Dosage: UNK
     Route: 042

REACTIONS (10)
  - PLATELET COUNT DECREASED [None]
  - HAEMOGLOBIN DECREASED [None]
  - PETECHIAE [None]
  - GAIT DISTURBANCE [None]
  - MUSCLE SPASMS [None]
  - DYSPNOEA [None]
  - STRESS [None]
  - MYALGIA [None]
  - SOMNOLENCE [None]
  - FATIGUE [None]
